FAERS Safety Report 11231064 (Version 1)
Quarter: 2015Q2

REPORT INFORMATION
  Report Type: Spontaneous
  Country: US (occurrence: None)
  Receive Date: 20150612
  Receipt Date: 20150612
  Transmission Date: 20150821
  Serious: No
  Sender: FDA-Public Use
  Company Number: 2015TUS003616

PATIENT
  Age: 75 Year
  Sex: Female
  Weight: 53.1 kg

DRUGS (7)
  1. MYRBETEIQ (OTHER UROLOGICALS, INCL ANTISPASMODICS) [Concomitant]
  2. ZETIA [Concomitant]
     Active Substance: EZETIMIBE
  3. AMARYL [Concomitant]
     Active Substance: GLIMEPIRIDE
  4. CRANBERRY (VACCINIUM MACROCARPON) [Concomitant]
  5. ASPIRIN (ACETYLSALICYLIC ACID) [Concomitant]
     Active Substance: ASPIRIN
  6. NESINA [Suspect]
     Active Substance: ALOGLIPTIN BENZOATE
     Indication: TYPE 2 DIABETES MELLITUS
     Dosage: 1 TAB
     Route: 048
     Dates: start: 20150318
  7. AZO (AZITHROMYCIN) [Concomitant]

REACTIONS (2)
  - Drug dispensing error [None]
  - No adverse event [None]
